FAERS Safety Report 15706782 (Version 25)
Quarter: 2020Q2

REPORT INFORMATION
  Report Type: Report from Study
  Country: US (occurrence: US)
  Receive Date: 20181210
  Receipt Date: 20200528
  Transmission Date: 20200713
  Serious: Yes (Hospitalization, Other)
  Sender: FDA-Public Use
  Company Number: US-ACTELION-A-NJ2018-182250

PATIENT
  Age: 74 Year
  Sex: Male
  Weight: 102.95 kg

DRUGS (11)
  1. LASIX [Suspect]
     Active Substance: FUROSEMIDE
     Indication: PRODUCT USED FOR UNKNOWN INDICATION
     Route: 065
  2. WARFARIN [Concomitant]
     Active Substance: WARFARIN
  3. ADEMPAS [Suspect]
     Active Substance: RIOCIGUAT
     Indication: PRODUCT USED FOR UNKNOWN INDICATION
     Dosage: 1.5 MG, TID
     Route: 048
  4. LANTUS [Concomitant]
     Active Substance: INSULIN GLARGINE
  5. ADEMPAS [Suspect]
     Active Substance: RIOCIGUAT
     Dosage: 1.5 MG, BID
     Route: 048
     Dates: start: 20190114
  6. OPSUMIT [Suspect]
     Active Substance: MACITENTAN
     Indication: PULMONARY ARTERIAL HYPERTENSION
     Dosage: 10 MG, QD
     Route: 048
  7. ADEMPAS [Suspect]
     Active Substance: RIOCIGUAT
     Dosage: UNK
     Route: 048
     Dates: start: 20181117
  8. OPSUMIT [Suspect]
     Active Substance: MACITENTAN
     Dosage: 10 MG, QD
     Route: 048
  9. ADEMPAS [Suspect]
     Active Substance: RIOCIGUAT
     Dosage: 1.5 MG, BID
     Route: 048
  10. NPH INSULIN [Concomitant]
     Active Substance: INSULIN BEEF
  11. ELIQUIS [Concomitant]
     Active Substance: APIXABAN

REACTIONS (48)
  - Dyspepsia [Unknown]
  - Gastrooesophageal reflux disease [Unknown]
  - Decreased appetite [Unknown]
  - Blood pressure decreased [Unknown]
  - Dyspnoea exertional [Unknown]
  - Blood glucose increased [Recovering/Resolving]
  - Dyspnoea [Unknown]
  - Blood glucose decreased [Unknown]
  - Constipation [Unknown]
  - Balance disorder [Unknown]
  - Headache [Unknown]
  - Sinus congestion [Unknown]
  - Condition aggravated [Unknown]
  - Hypotension [Not Recovered/Not Resolved]
  - Tremor [Not Recovered/Not Resolved]
  - Toothache [Unknown]
  - Oedema [Not Recovered/Not Resolved]
  - Nephrolithiasis [Unknown]
  - Oliguria [Unknown]
  - Pollakiuria [Unknown]
  - Arthritis [Unknown]
  - Urticaria [Unknown]
  - Swelling [Recovering/Resolving]
  - Dizziness [Unknown]
  - Fluid retention [Unknown]
  - Renal colic [Unknown]
  - Nasal dryness [Unknown]
  - Unevaluable event [Unknown]
  - Diarrhoea [Unknown]
  - Rash [Unknown]
  - Abdominal pain [Unknown]
  - Fatigue [Unknown]
  - Vision blurred [Unknown]
  - Tunnel vision [Unknown]
  - Tooth extraction [Unknown]
  - Pneumonia [Unknown]
  - Atrial fibrillation [Unknown]
  - Blood pressure systolic decreased [Unknown]
  - Dysuria [Unknown]
  - Back pain [Unknown]
  - Nausea [Unknown]
  - Heart rate increased [Unknown]
  - Pruritus [Unknown]
  - Oedema peripheral [Not Recovered/Not Resolved]
  - Renal disorder [Unknown]
  - Arthralgia [Unknown]
  - Musculoskeletal pain [Not Recovered/Not Resolved]
  - Pain in jaw [Not Recovered/Not Resolved]

NARRATIVE: CASE EVENT DATE: 201811
